FAERS Safety Report 21321732 (Version 1)
Quarter: 2022Q3

REPORT INFORMATION
  Report Type: Spontaneous
  Country: US (occurrence: None)
  Receive Date: 20220909
  Receipt Date: 20220909
  Transmission Date: 20221027
  Serious: No
  Sender: FDA-Public Use
  Company Number: None

PATIENT
  Age: 50 Year
  Sex: Female
  Weight: 123.38 kg

DRUGS (25)
  1. CAPECITABINE [Suspect]
     Active Substance: CAPECITABINE
     Indication: Breast cancer female
     Dosage: OTHER QUANTITY : 2000-2500MG;?FREQUENCY : AS DIRECTED;?
     Route: 048
     Dates: start: 202111
  2. ASPIRIN [Concomitant]
     Active Substance: ASPIRIN
  3. DEXAMETHASONE [Concomitant]
     Active Substance: DEXAMETHASONE
  4. EFFEXOR XR [Concomitant]
     Active Substance: VENLAFAXINE HYDROCHLORIDE
  5. ELIQUIS [Concomitant]
     Active Substance: APIXABAN
  6. EPICOCCUM [Concomitant]
     Active Substance: EPICOCCUM NIGRUM
  7. IRON [Concomitant]
     Active Substance: IRON
  8. FUROSEMIDE [Concomitant]
     Active Substance: FUROSEMIDE
  9. GABAPENTIN [Concomitant]
     Active Substance: GABAPENTIN
  10. GLIPIZIDE ER [Concomitant]
     Active Substance: GLIPIZIDE
  11. ACETAMINOPHEN\HYDROCODONE [Concomitant]
     Active Substance: ACETAMINOPHEN\HYDROCODONE
  12. IRON [Concomitant]
     Active Substance: IRON
  13. IXABEPILONE [Concomitant]
     Active Substance: IXABEPILONE
  14. IXEMPRA [Concomitant]
     Active Substance: IXABEPILONE
  15. LEVETIRACETAM [Concomitant]
     Active Substance: LEVETIRACETAM
  16. LIDOCAINE\PRILOCAINE [Concomitant]
     Active Substance: LIDOCAINE\PRILOCAINE
  17. METOPROLOL TARTRATE [Concomitant]
     Active Substance: METOPROLOL TARTRATE
  18. VITAMINS [Concomitant]
     Active Substance: VITAMINS
  19. ONDANSETRON [Concomitant]
     Active Substance: ONDANSETRON
  20. PACLITAXEL [Concomitant]
     Active Substance: PACLITAXEL
  21. PANTOPRAZOLE [Concomitant]
     Active Substance: PANTOPRAZOLE
  22. SILVER [Concomitant]
     Active Substance: SILVER
  23. SULFADIAZINE [Concomitant]
     Active Substance: SULFADIAZINE
  24. TRAMADOL [Concomitant]
     Active Substance: TRAMADOL
  25. VALACYCLOVIR [Concomitant]
     Active Substance: VALACYCLOVIR HYDROCHLORIDE

REACTIONS (2)
  - Hospice care [None]
  - Therapy cessation [None]
